FAERS Safety Report 13888855 (Version 2)
Quarter: 2017Q4

REPORT INFORMATION
  Report Type: Report from Study
  Country: PK (occurrence: PK)
  Receive Date: 20170822
  Receipt Date: 20171115
  Transmission Date: 20180320
  Serious: Yes (Death, Hospitalization, Other)
  Sender: FDA-Public Use
  Company Number: PK-SUN PHARMACEUTICAL INDUSTRIES LTD-2017R1-147702

PATIENT
  Age: 65 Year
  Sex: Male

DRUGS (2)
  1. PYRIMETHAMINE [Suspect]
     Active Substance: PYRIMETHAMINE
     Indication: PRODUCT USED FOR UNKNOWN INDICATION
     Dosage: 50 MG
     Route: 065
  2. ISOTAB-20 (ISOSORBIDE MONONITRATE) [Suspect]
     Active Substance: ISOSORBIDE MONONITRATE
     Indication: CARDIAC DISORDER
     Dosage: 20 MG, BID
     Route: 065

REACTIONS (7)
  - Cardio-respiratory arrest [Fatal]
  - Bone marrow failure [Fatal]
  - Dermatitis exfoliative [Fatal]
  - Drug interaction [Fatal]
  - Toxicity to various agents [Fatal]
  - Product contamination [Fatal]
  - Pericardial effusion [Fatal]

NARRATIVE: CASE EVENT DATE: 20120127
